FAERS Safety Report 7437997-1 (Version None)
Quarter: 2011Q2

REPORT INFORMATION
  Report Type: 
  Country: None (occurrence: None)
  Receive Date: 20110426
  Receipt Date: 20110414
  Transmission Date: 20111010
  Serious: Yes (Other)
  Sender: FDA-Public Use
  Company Number: US-JNJFOC-20110406886

PATIENT

DRUGS (1)
  1. LEVAQUIN [Suspect]
     Indication: PRODUCT USED FOR UNKNOWN INDICATION
     Route: 065

REACTIONS (5)
  - TENDON INJURY [None]
  - PAIN IN EXTREMITY [None]
  - ARTHRALGIA [None]
  - HYPOKINESIA [None]
  - OEDEMA PERIPHERAL [None]
